FAERS Safety Report 5849658-0 (Version None)
Quarter: 2008Q3

REPORT INFORMATION
  Report Type: 
  Country: None (occurrence: None)
  Receive Date: 20080818
  Receipt Date: 20080818
  Transmission Date: 20090109
  Serious: Yes (Hospitalization)
  Sender: FDA-Public Use
  Company Number: None

PATIENT
  Sex: Female
  Weight: 104.3273 kg

DRUGS (2)
  1. CLINDAMYCIN HCL [Suspect]
     Indication: ANIMAL SCRATCH
     Dosage: 1 TAB 2 P/D PO
     Route: 048
     Dates: start: 20070712, end: 20070719
  2. CLINDAMYCIN HCL [Suspect]
     Indication: SKIN INFECTION
     Dosage: 1 TAB 2 P/D PO
     Route: 048
     Dates: start: 20070712, end: 20070719

REACTIONS (8)
  - ABDOMINAL DISTENSION [None]
  - ABDOMINAL PAIN UPPER [None]
  - ANOREXIA [None]
  - DIARRHOEA [None]
  - DRUG INEFFECTIVE [None]
  - DYSCHEZIA [None]
  - NAUSEA [None]
  - WEIGHT DECREASED [None]
